FAERS Safety Report 17934197 (Version 1)
Quarter: 2020Q2

REPORT INFORMATION
  Report Type: Spontaneous
  Country: GB (occurrence: GB)
  Receive Date: 20200624
  Receipt Date: 20200624
  Transmission Date: 20200714
  Serious: Yes (Other)
  Sender: FDA-Public Use
  Company Number: GB-009507513-2006GBR007973

PATIENT
  Age: 82 Year
  Sex: Male
  Weight: 108 kg

DRUGS (2)
  1. IBUPROFEN. [Concomitant]
     Active Substance: IBUPROFEN
     Dosage: 3 DOSAGE FORM, QD/APPLY
     Dates: start: 20200327, end: 20200406
  2. FINASTERIDE. [Suspect]
     Active Substance: FINASTERIDE
     Indication: PROSTATOMEGALY
     Dosage: 5 MILLIGRAM, QD, PL 08553/0261
     Route: 048
     Dates: start: 20190520, end: 20200604

REACTIONS (1)
  - Paraesthesia [Recovered/Resolved]

NARRATIVE: CASE EVENT DATE: 20200401
